FAERS Safety Report 17181404 (Version 3)
Quarter: 2020Q1

REPORT INFORMATION
  Report Type: Report from Study
  Country: US (occurrence: US)
  Receive Date: 20191220
  Receipt Date: 20200121
  Transmission Date: 20200409
  Serious: Yes (Death, Hospitalization)
  Sender: FDA-Public Use
  Company Number: US-EMD SERONO-9136076

PATIENT
  Age: 74 Year
  Sex: Female

DRUGS (1)
  1. REBIF [Suspect]
     Active Substance: INTERFERON BETA-1A
     Indication: MULTIPLE SCLEROSIS
     Route: 058
     Dates: start: 20130612

REACTIONS (3)
  - Cellulitis [Unknown]
  - Death [Fatal]
  - Decubitus ulcer [Unknown]

NARRATIVE: CASE EVENT DATE: 201911
